FAERS Safety Report 4791775-0 (Version None)
Quarter: 2005Q4

REPORT INFORMATION
  Report Type: 
  Country: None (occurrence: None)
  Receive Date: 20051007
  Receipt Date: 20050929
  Transmission Date: 20060501
  Serious: Yes (Hospitalization)
  Sender: FDA-Public Use
  Company Number: PHBS2005CA14469

PATIENT

DRUGS (1)
  1. CLOZARIL [Suspect]
     Dosage: 225 MG/D
     Route: 048

REACTIONS (6)
  - ASTHENIA [None]
  - ATROPHY [None]
  - DIZZINESS [None]
  - INFARCTION [None]
  - ISCHAEMIC STROKE [None]
  - SOMNOLENCE [None]
